FAERS Safety Report 23235228 (Version 4)
Quarter: 2024Q1

REPORT INFORMATION
  Report Type: Spontaneous
  Country: CA (occurrence: CA)
  Receive Date: 20231128
  Receipt Date: 20240216
  Transmission Date: 20240409
  Serious: Yes (Other)
  Sender: FDA-Public Use
  Company Number: CA-PFIZER INC-202300279884

PATIENT
  Age: 61 Year
  Sex: Male

DRUGS (2)
  1. ABRILADA [Suspect]
     Active Substance: ADALIMUMAB-AFZB
     Indication: Colitis microscopic
     Dosage: 1 DF, PREFILLED PEN. WEEK0:160MG, WEEK2:80MG THEN 40 MG EVERY OTHER WEEK
     Route: 058
     Dates: start: 20231027, end: 202402
  2. ABRILADA [Suspect]
     Active Substance: ADALIMUMAB-AFZB
     Dosage: 1 DF, PREFILLED PEN. WEEK0:160MG, WEEK2:80MG THEN 40 MG EVERY OTHER WEEK
     Route: 058
     Dates: start: 20231110

REACTIONS (5)
  - Tooth disorder [Not Recovered/Not Resolved]
  - Condition aggravated [Not Recovered/Not Resolved]
  - Jaw disorder [Not Recovered/Not Resolved]
  - Headache [Not Recovered/Not Resolved]
  - Off label use [Unknown]

NARRATIVE: CASE EVENT DATE: 20230101
